FAERS Safety Report 8474156 (Version 2)
Quarter: 2012Q4

REPORT INFORMATION
  Report Type: 
  Country: US (occurrence: US)
  Receive Date: 20120323
  Receipt Date: 20121016
  Transmission Date: 20130627
  Serious: Yes (Hospitalization)
  Sender: FDA-Public Use
  Company Number: US-US-EMD SERONO, INC.-7119694

PATIENT
  Sex: Female

DRUGS (9)
  1. REBIF [Suspect]
     Indication: MULTIPLE SCLEROSIS
     Route: 058
     Dates: start: 20111221, end: 20120801
  2. REBIF [Suspect]
     Route: 058
     Dates: start: 20120822
  3. PROVIGIL [Concomitant]
     Indication: ASTHENIA
  4. BACLOFEN [Concomitant]
     Indication: MUSCLE SPASMS
  5. CLONAZEPAM [Concomitant]
     Indication: MUSCLE SPASMS
  6. ZOLOFT [Concomitant]
     Indication: DEPRESSION
  7. AMPYRA [Concomitant]
     Indication: FALL
  8. CALCIUM [Concomitant]
     Indication: VITAMIN SUPPLEMENTATION
  9. FISH OIL [Concomitant]
     Indication: VITAMIN SUPPLEMENTATION

REACTIONS (2)
  - Multiple sclerosis relapse [Recovered/Resolved]
  - Influenza like illness [Not Recovered/Not Resolved]
